FAERS Safety Report 6778802-6 (Version None)
Quarter: 2010Q2

REPORT INFORMATION
  Report Type: 
  Country: None (occurrence: None)
  Receive Date: 20100618
  Receipt Date: 20100607
  Transmission Date: 20101027
  Serious: Yes (Other)
  Sender: FDA-Public Use
  Company Number: US-JNJFOC-20100602789

PATIENT
  Sex: Female
  Weight: 63.5 kg

DRUGS (9)
  1. REMICADE [Suspect]
     Indication: COLITIS ULCERATIVE
     Dosage: STARTED INFLIXIMAB (2005 OR 2006)
     Route: 042
  2. REMICADE [Suspect]
     Indication: CROHN'S DISEASE
     Dosage: STARTED INFLIXIMAB (2005 OR 2006)
     Route: 042
  3. ASACOL [Concomitant]
     Indication: CROHN'S DISEASE
  4. ASACOL [Concomitant]
     Indication: COLITIS ULCERATIVE
  5. COLAZAL [Concomitant]
     Indication: CROHN'S DISEASE
  6. COLAZAL [Concomitant]
     Indication: COLITIS ULCERATIVE
  7. GLIMEPIRIDE [Concomitant]
     Indication: DIABETES MELLITUS
  8. LASIX [Concomitant]
     Indication: DIURETIC THERAPY
  9. KLOR-CON [Concomitant]
     Indication: DIURETIC THERAPY

REACTIONS (3)
  - HYSTERECTOMY [None]
  - INFUSION RELATED REACTION [None]
  - URTICARIA [None]
